FAERS Safety Report 6088420-3 (Version None)
Quarter: 2009Q1

REPORT INFORMATION
  Report Type: 
  Country: None (occurrence: None)
  Receive Date: 20090224
  Receipt Date: 20090213
  Transmission Date: 20090719
  Serious: Yes (Other)
  Sender: FDA-Public Use
  Company Number: SG-PFIZER INC-2009170096

PATIENT

DRUGS (1)
  1. GLIPIZIDE [Suspect]

REACTIONS (2)
  - ASTHENIA [None]
  - DIZZINESS [None]
